FAERS Safety Report 5140512-9 (Version None)
Quarter: 2006Q4

REPORT INFORMATION
  Report Type: 
  Country: None (occurrence: None)
  Receive Date: 20061025
  Receipt Date: 20061011
  Transmission Date: 20070319
  Serious: Yes (Death, Hospitalization)
  Sender: FDA-Public Use
  Company Number: 2006SP004244

PATIENT
  Age: 45 Year
  Sex: Male
  Weight: 73.5 kg

DRUGS (6)
  1. TEMODAR [Suspect]
     Indication: GLIOBLASTOMA MULTIFORME
     Dates: start: 20060728, end: 20060811
  2. TEMODAR [Suspect]
     Indication: GLIOBLASTOMA MULTIFORME
     Dates: start: 20060202
  3. CELECOXIB [Suspect]
     Indication: GLIOBLASTOMA MULTIFORME
     Dates: start: 20060728, end: 20060821
  4. CELECOXIB [Suspect]
     Indication: GLIOBLASTOMA MULTIFORME
     Dates: start: 20060202
  5. ACCUTANE [Suspect]
     Indication: GLIOBLASTOMA MULTIFORME
     Dosage: PO
     Route: 048
     Dates: start: 20060728, end: 20060817
  6. ACCUTANE [Suspect]
     Indication: GLIOBLASTOMA MULTIFORME
     Dosage: PO
     Route: 048
     Dates: start: 20060202

REACTIONS (4)
  - BONE MARROW FAILURE [None]
  - LYMPHOCYTE COUNT DECREASED [None]
  - NEUTROPHIL COUNT DECREASED [None]
  - PNEUMOCYSTIS JIROVECI PNEUMONIA [None]
